FAERS Safety Report 9524222 (Version 1)
Quarter: 2013Q3

REPORT INFORMATION
  Report Type: Spontaneous
  Country: US (occurrence: None)
  Receive Date: 20130912
  Receipt Date: 20130912
  Transmission Date: 20140515
  Serious: Yes (Other)
  Sender: FDA-Public Use
  Company Number: None

PATIENT
  Age: 31 None
  Sex: Male

DRUGS (7)
  1. CORTISONE [Suspect]
     Indication: JOINT INJURY
     Dosage: 1 INJECTION ONE TIME DOSE INJECTION TO POSTERIOR OF SHOULDER.
     Dates: start: 20130904, end: 20130904
  2. CORTISONE [Suspect]
     Indication: TENDON TRANSFER
     Dosage: 1 INJECTION ONE TIME DOSE INJECTION TO POSTERIOR OF SHOULDER.
     Dates: start: 20130904, end: 20130904
  3. CORTISONE [Suspect]
     Dosage: 1 INJECTION ONE TIME DOSE INJECTION TO POSTERIOR OF SHOULDER.
     Dates: start: 20130904, end: 20130904
  4. PROPRANALOL [Concomitant]
  5. ARMOUR THYROID [Concomitant]
  6. PHENTERMINE [Concomitant]
  7. MENS ONE A DAY [Concomitant]

REACTIONS (4)
  - Headache [None]
  - Diarrhoea [None]
  - Hot flush [None]
  - Hot flush [None]
